FAERS Safety Report 9145366 (Version 1)
Quarter: 2013Q1

REPORT INFORMATION
  Report Type: Spontaneous
  Country: US (occurrence: None)
  Receive Date: 20130226
  Receipt Date: 20130226
  Transmission Date: 20140127
  Serious: Yes (Other)
  Sender: FDA-Public Use
  Company Number: None

PATIENT
  Age: 79 Year
  Sex: Male
  Weight: 73.48 kg

DRUGS (2)
  1. TESTOSTERONE [Suspect]
     Indication: BLOOD TESTOSTERONE DECREASED
     Dosage: 3 INJECTIONS 1.50ML INJECTION EVERY THREE WEEKS
     Dates: start: 20120919, end: 20121030
  2. ANDROGEL 1% [Suspect]
     Dosage: SEVERAL MONTHS
     Dates: start: 20110901, end: 20120901

REACTIONS (3)
  - Acne [None]
  - Feeling abnormal [None]
  - Treatment noncompliance [None]
